FAERS Safety Report 7398842-6 (Version None)
Quarter: 2011Q2

REPORT INFORMATION
  Report Type: 
  Country: None (occurrence: None)
  Receive Date: 20110404
  Receipt Date: 20110404
  Transmission Date: 20111010
  Serious: Yes (Hospitalization)
  Sender: FDA-Public Use
  Company Number: None

PATIENT
  Age: 82 Year
  Sex: Female
  Weight: 77.5651 kg

DRUGS (1)
  1. FERRLECIT [Suspect]
     Indication: ANAEMIA
     Dosage: 125MG/100G NS OVER 1 HOUR

REACTIONS (3)
  - HYPERHIDROSIS [None]
  - DIZZINESS [None]
  - NAUSEA [None]
